FAERS Safety Report 23895276 (Version 2)
Quarter: 2024Q3

REPORT INFORMATION
  Report Type: Spontaneous
  Country: SK (occurrence: SK)
  Receive Date: 20240524
  Receipt Date: 20240819
  Transmission Date: 20241016
  Serious: No
  Sender: MYLAN
  Company Number: SK-MYLANLABS-2024M1030368

PATIENT
  Age: 41 Year
  Sex: Female

DRUGS (1)
  1. CYCLOSPORINE [Suspect]
     Active Substance: CYCLOSPORINE
     Indication: Psoriasis
     Dosage: 200 MILLIGRAM, QD, CYCLOSPORIN
     Route: 065

REACTIONS (3)
  - Upper respiratory tract infection [Recovered/Resolved]
  - Paraesthesia [Recovered/Resolved]
  - Abdominal pain upper [Recovered/Resolved]
